FAERS Safety Report 9165178 (Version 1)
Quarter: 2013Q1

REPORT INFORMATION
  Report Type: Spontaneous
  Country: FR (occurrence: FR)
  Receive Date: 20130315
  Receipt Date: 20130315
  Transmission Date: 20140127
  Serious: Yes (Hospitalization)
  Sender: FDA-Public Use
  Company Number: FR-TEVA-390747ISR

PATIENT
  Age: 59 Year
  Sex: Male
  Weight: 140 kg

DRUGS (14)
  1. METFORMINE [Suspect]
     Indication: TYPE 2 DIABETES MELLITUS
     Dosage: 1.5 GRAM DAILY; TAKEN FOR 4 YEARS
     Route: 048
     Dates: end: 20101001
  2. PIASCLEDINE [Suspect]
     Indication: OSTEOARTHRITIS
     Dosage: 300 MILLIGRAM DAILY; 1 DF=300 MG
     Route: 048
     Dates: start: 20100603, end: 20100927
  3. CRESTOR [Suspect]
     Indication: HYPERCHOLESTEROLAEMIA
     Dosage: 5 MILLIGRAM DAILY; TAKEN FOR 4 YEARS AT LEAST
     Route: 048
     Dates: end: 20101001
  4. PREVISCAN [Suspect]
     Indication: PHLEBITIS
     Dosage: 25 MILLIGRAM DAILY; TAKEN FOR AT LEAST 4 YEARS
     Route: 048
     Dates: end: 20101001
  5. FUCIDINE [Suspect]
     Indication: DERMATOSIS
     Route: 061
     Dates: start: 20100909, end: 20101001
  6. ZOFENOPRIL [Suspect]
     Indication: HYPERTENSION
     Dosage: 30 MILLIGRAM DAILY; TAKEN FOR MORE THAN 1 YEAR
     Route: 048
     Dates: end: 20101001
  7. MOCLAMINE [Suspect]
     Indication: DEPRESSION
     Dosage: 450 MILLIGRAM DAILY;
     Route: 048
     Dates: end: 20101001
  8. DAFALGAN [Suspect]
     Dosage: 4 GRAM DAILY; TAKEN FOR MORE THAN 1 YEAR
     Route: 048
     Dates: end: 20101001
  9. ZANIDIP [Suspect]
     Indication: HYPERTENSION
     Dosage: 10 MILLIGRAM DAILY; TAKEN FOR AT LEAST 4 YEARS
     Route: 048
     Dates: end: 20101001
  10. SERETIDE (50MCG/250MCG) [Suspect]
     Indication: CHRONIC OBSTRUCTIVE PULMONARY DISEASE
     Dosage: 2 DOSAGE FORMS DAILY;
     Route: 055
     Dates: end: 20101001
  11. LANTUS [Concomitant]
     Dosage: 64 IU (INTERNATIONAL UNIT) DAILY;
  12. NOVONORM 2 MG [Concomitant]
     Dosage: 3 DOSAGE FORMS DAILY;
     Route: 048
  13. ADANCOR 10 MG [Concomitant]
     Route: 048
  14. FORLAX [Concomitant]
     Route: 048

REACTIONS (6)
  - Hepatitis [Recovering/Resolving]
  - Jaundice [Recovering/Resolving]
  - Hepatic necrosis [None]
  - Hepatitis E [None]
  - Hepatic fibrosis [None]
  - Hepatic steatosis [None]
